FAERS Safety Report 4383077-1 (Version None)
Quarter: 2004Q2

REPORT INFORMATION
  Report Type: 
  Country: None (occurrence: None)
  Receive Date: 20040618
  Receipt Date: 20040608
  Transmission Date: 20050107
  Serious: Yes (Hospitalization)
  Sender: FDA-Public Use
  Company Number: 04P-087-0258690-00

PATIENT
  Age: 37 Year
  Sex: Male

DRUGS (3)
  1. TRICOR [Suspect]
     Indication: HYPERLIPIDAEMIA
     Dosage: 150 MG, 2 IN 1 D, ORAL
     Route: 048
     Dates: start: 20040327, end: 20040402
  2. FLUOROMETHOLONE [Concomitant]
  3. CARBAZOCHROME SODIUM SULFONATE [Concomitant]

REACTIONS (5)
  - ANOREXIA [None]
  - BOWEL SOUNDS ABNORMAL [None]
  - HEPATITIS ACUTE [None]
  - HEPATITIS B VIRUS [None]
  - NAUSEA [None]
